FAERS Safety Report 9305712 (Version 2)
Quarter: 2013Q2

REPORT INFORMATION
  Report Type: Spontaneous
  Country: PL (occurrence: None)
  Receive Date: 20130430
  Receipt Date: 20130430
  Transmission Date: 20140414
  Serious: Yes (Life-Threatening, Hospitalization)
  Sender: FDA-Public Use
  Company Number: 2013035702

PATIENT
  Age: 3 Year
  Sex: Female

DRUGS (5)
  1. PRIVIGEN [Suspect]
     Indication: KAWASAKI^S DISEASE
     Dosage: 10% CONCENTRATION OF SOLUTION
     Route: 042
     Dates: start: 20120808, end: 20120808
  2. ASPIRINE (ACETYLSALICYLIC ACID) [Concomitant]
  3. AMOXICILLIN (AMOXICILLIN) [Concomitant]
  4. CLAVULANIC ACID (CLAVULANIC ACID) [Concomitant]
  5. OMEPRAZOLE (OMEPRAZOLE) [Concomitant]

REACTIONS (3)
  - Anaphylactic shock [None]
  - Anxiety [None]
  - Pyrexia [None]
